FAERS Safety Report 8930389 (Version 1)
Quarter: 2012Q4

REPORT INFORMATION
  Report Type: 
  Country: US (occurrence: US)
  Receive Date: 20121128
  Receipt Date: 20121128
  Transmission Date: 20130627
  Serious: Yes (Other)
  Sender: FDA-Public Use
  Company Number: US-ENDO PHARMACEUTICALS INC.-PERC20120169

PATIENT
  Age: 70 Year
  Sex: Male

DRUGS (5)
  1. PERCOCET [Suspect]
     Indication: PAIN
     Dosage: UNKNOWN
     Route: 048
  2. GABAPENTIN [Suspect]
     Indication: PRODUCT USED FOR UNKNOWN INDICATION
     Route: 048
  3. GABAPENTIN [Suspect]
     Route: 048
  4. VICODIN [Suspect]
     Indication: PAIN
     Dosage: UNKNOWN
     Route: 048
  5. ADVIL [Concomitant]
     Indication: PRODUCT USED FOR UNKNOWN INDICATION
     Dosage: UNKNOWN
     Route: 048

REACTIONS (10)
  - Lung neoplasm malignant [Unknown]
  - Dyskinesia [Unknown]
  - Amnesia [Unknown]
  - Coordination abnormal [Unknown]
  - Poor quality sleep [Unknown]
  - Adverse event [Unknown]
  - Somnolence [Unknown]
  - Fatigue [Unknown]
  - Malaise [Unknown]
  - Dizziness [Unknown]
